APPROVED DRUG PRODUCT: CHROMIC CHLORIDE IN PLASTIC CONTAINER
Active Ingredient: CHROMIC CHLORIDE
Strength: EQ 0.004MG CHROMIUM/ML
Dosage Form/Route: INJECTABLE;INJECTION
Application: N018961 | Product #001 | TE Code: AP
Applicant: HOSPIRA INC
Approved: Jun 26, 1986 | RLD: Yes | RS: Yes | Type: RX